FAERS Safety Report 17171296 (Version 1)
Quarter: 2019Q4

REPORT INFORMATION
  Report Type: Spontaneous
  Country: US (occurrence: US)
  Receive Date: 20191218
  Receipt Date: 20191218
  Transmission Date: 20200122
  Serious: No
  Sender: FDA-Public Use
  Company Number: US-SUPERNUS PHARMACEUTICALS, INC.-2019SUP00364

PATIENT
  Sex: Female

DRUGS (3)
  1. TROKENDI XR [Suspect]
     Active Substance: TOPIRAMATE
     Dosage: UNK
  2. TROKENDI XR [Suspect]
     Active Substance: TOPIRAMATE
     Dosage: 75 MG
  3. TROKENDI XR [Suspect]
     Active Substance: TOPIRAMATE
     Indication: VESTIBULAR MIGRAINE
     Dosage: 75 MG

REACTIONS (6)
  - Unevaluable event [Unknown]
  - Vertigo [Unknown]
  - Fatigue [Unknown]
  - Performance status decreased [Unknown]
  - Cognitive disorder [Unknown]
  - Arthralgia [Unknown]
